FAERS Safety Report 9485972 (Version 1)
Quarter: 2013Q3

REPORT INFORMATION
  Report Type: Spontaneous
  Country: CO (occurrence: CO)
  Receive Date: 20130829
  Receipt Date: 20130829
  Transmission Date: 20140515
  Serious: Yes (Death)
  Sender: FDA-Public Use
  Company Number: CO-AMGEN-COLSP2013060245

PATIENT
  Age: 52 Year
  Sex: Male

DRUGS (1)
  1. PEGFILGRASTIM [Suspect]
     Indication: NEUTROPENIA
     Dosage: 6 MG, UNK
     Route: 058
     Dates: end: 20130801

REACTIONS (1)
  - Sepsis [Fatal]
